FAERS Safety Report 9686623 (Version 1)
Quarter: 2013Q4

REPORT INFORMATION
  Report Type: Report from Study
  Country: JP (occurrence: JP)
  Receive Date: 20131113
  Receipt Date: 20131113
  Transmission Date: 20140711
  Serious: Yes (Hospitalization)
  Sender: FDA-Public Use
  Company Number: JP-GLAXOSMITHKLINE-B0940641A

PATIENT
  Age: 38 Year
  Sex: Female

DRUGS (16)
  1. TOPOTECAN HYDROCHLORIDE [Suspect]
     Indication: CERVIX CARCINOMA
     Dosage: .75MGM2 CYCLIC
     Route: 042
     Dates: start: 20130918
  2. CISPLATIN [Suspect]
     Indication: CERVIX CARCINOMA
     Dosage: 50MGM2 CYCLIC
     Route: 042
     Dates: start: 20130918
  3. OXYCONTIN [Concomitant]
     Dosage: 20MG PER DAY
     Dates: start: 20131021, end: 20131029
  4. OXYCONTIN [Concomitant]
     Dates: start: 20131029, end: 20131031
  5. OXYCONTIN [Concomitant]
     Dates: start: 20131101
  6. OXYNORM [Concomitant]
     Dosage: 5MG TWICE PER DAY
     Dates: start: 20130924, end: 20131031
  7. OXINORM [Concomitant]
     Dosage: 5MG THREE TIMES PER DAY
     Dates: start: 20131101
  8. VOLTAREN [Concomitant]
     Dates: start: 20130829
  9. SELBEX [Concomitant]
     Dosage: 50MG PER DAY
     Dates: start: 20130829
  10. FERO-GRADUMET [Concomitant]
     Dosage: 105MG PER DAY
     Dates: start: 20131008
  11. ESTRADIOL [Concomitant]
     Dates: start: 20130329
  12. PRIMPERAN [Concomitant]
     Dosage: 5MG PER DAY
     Dates: start: 20130910
  13. MAGNESIUM OXIDE [Concomitant]
     Dosage: 330MG PER DAY
     Dates: start: 20130404
  14. VIDARABINE [Concomitant]
     Dates: start: 20131016
  15. KETOPROFEN [Concomitant]
     Dates: start: 20131002
  16. ISODINE GARGLE [Concomitant]
     Dates: start: 20130919

REACTIONS (1)
  - Urinary tract infection [Recovered/Resolved]
